FAERS Safety Report 9413120 (Version 1)
Quarter: 2013Q3

REPORT INFORMATION
  Report Type: Report from Study
  Country: CA (occurrence: CA)
  Receive Date: 20130722
  Receipt Date: 20130722
  Transmission Date: 20140515
  Serious: Yes (Other)
  Sender: FDA-Public Use
  Company Number: CA-ROCHE-1226054

PATIENT
  Age: 48 Year
  Sex: Female
  Weight: 132 kg

DRUGS (7)
  1. ACTEMRA [Suspect]
     Indication: RHEUMATOID ARTHRITIS
     Route: 042
     Dates: start: 20130509
  2. PLAQUENIL [Concomitant]
  3. WELLBUTRIN [Concomitant]
  4. GABAPENTIN [Concomitant]
  5. PANTOLOC [Concomitant]
  6. MISOPROSTOL [Concomitant]
  7. NABUMETONE [Concomitant]

REACTIONS (11)
  - Pain [Unknown]
  - Renal function test abnormal [Unknown]
  - Drug hypersensitivity [Unknown]
  - Paraesthesia [Recovered/Resolved]
  - Rash [Recovered/Resolved]
  - Abdominal pain [Recovered/Resolved]
  - Migraine [Recovered/Resolved]
  - Blood pressure increased [Recovered/Resolved]
  - Dizziness [Recovered/Resolved]
  - Back pain [Not Recovered/Not Resolved]
  - Oedema peripheral [Unknown]
